FAERS Safety Report 25668345 (Version 2)
Quarter: 2025Q3

REPORT INFORMATION
  Report Type: Spontaneous
  Country: JP (occurrence: JP)
  Receive Date: 20250812
  Receipt Date: 20250820
  Transmission Date: 20251021
  Serious: Yes (Hospitalization, Other)
  Sender: TERSERA THERAPEUTICS
  Company Number: JP-ASTRAZENECA-240065527_010210_P_1

PATIENT

DRUGS (2)
  1. GOSERELIN [Suspect]
     Active Substance: GOSERELIN
     Indication: Prostate cancer
     Dosage: DOSE UNKNOWN, FREQUENCY: Q4WK
     Route: 058
  2. ZOLADEX [Suspect]
     Active Substance: GOSERELIN ACETATE
     Indication: Prostate cancer
     Route: 065

REACTIONS (3)
  - Subcutaneous haematoma [Recovering/Resolving]
  - Arterial injury [Recovering/Resolving]
  - Anaemia [Recovering/Resolving]
